FAERS Safety Report 4819625-4 (Version None)
Quarter: 2005Q4

REPORT INFORMATION
  Report Type: 
  Country: None (occurrence: None)
  Receive Date: 20051101
  Receipt Date: 20051101
  Transmission Date: 20060501
  Serious: Yes (Hospitalization)
  Sender: FDA-Public Use
  Company Number: None

PATIENT
  Sex: Male

DRUGS (1)
  1. LIDOCAINE [Suspect]
     Indication: ANAESTHESIA
     Dosage: LOCAL ANESTHESIA X1
     Dates: start: 20050728

REACTIONS (2)
  - HEMIPARESIS [None]
  - POST PROCEDURAL COMPLICATION [None]
